FAERS Safety Report 6461040-4 (Version None)
Quarter: 2009Q4

REPORT INFORMATION
  Report Type: 
  Country: None (occurrence: None)
  Receive Date: 20091130
  Receipt Date: 20091119
  Transmission Date: 20100525
  Serious: Yes (Hospitalization)
  Sender: FDA-Public Use
  Company Number: B0596794A

PATIENT
  Sex: Male

DRUGS (1)
  1. MALARONE [Suspect]
     Indication: PROPHYLAXIS
     Dosage: 1UNIT PER DAY
     Route: 048
     Dates: start: 20090903, end: 20090914

REACTIONS (6)
  - ASTHENIA [None]
  - DIARRHOEA [None]
  - PANCREATITIS [None]
  - RASH [None]
  - RASH MACULAR [None]
  - TOXIC SKIN ERUPTION [None]
